FAERS Safety Report 17211324 (Version 2)
Quarter: 2020Q1

REPORT INFORMATION
  Report Type: Spontaneous
  Country: JP (occurrence: JP)
  Receive Date: 20191228
  Receipt Date: 20200110
  Transmission Date: 20200409
  Serious: Yes (Hospitalization)
  Sender: FDA-Public Use
  Company Number: JP-ABBVIE-18K-087-2383614-00

PATIENT
  Age: 47 Year
  Sex: Female

DRUGS (8)
  1. DUODOPA [Suspect]
     Active Substance: CARBIDOPA\LEVODOPA
     Route: 050
  2. DUODOPA [Suspect]
     Active Substance: CARBIDOPA\LEVODOPA
     Dosage: STRENGTH 20 MG/ML 5 MG/ML
     Route: 050
  3. CARBIDOPA HYDRATE- LEVODOPA MIXT [Concomitant]
     Indication: PRODUCT USED FOR UNKNOWN INDICATION
     Route: 048
  4. DUODOPA [Suspect]
     Active Substance: CARBIDOPA\LEVODOPA
     Indication: PARKINSON^S DISEASE
     Route: 050
     Dates: start: 20180216
  5. DUODOPA [Suspect]
     Active Substance: CARBIDOPA\LEVODOPA
     Route: 050
  6. DUODOPA [Suspect]
     Active Substance: CARBIDOPA\LEVODOPA
     Route: 050
  7. DUODOPA [Suspect]
     Active Substance: CARBIDOPA\LEVODOPA
     Route: 050
  8. DUODOPA [Suspect]
     Active Substance: CARBIDOPA\LEVODOPA
     Route: 050

REACTIONS (25)
  - Dysphagia [Unknown]
  - Mobility decreased [Recovered/Resolved]
  - Fall [Recovered/Resolved]
  - Fall [Recovered/Resolved]
  - Fall [Unknown]
  - Dyskinesia [Recovered/Resolved]
  - Dyskinesia [Unknown]
  - Fall [Recovered/Resolved]
  - Freezing phenomenon [Unknown]
  - Dyskinesia [Recovered/Resolved]
  - Device breakage [Unknown]
  - Device difficult to use [Unknown]
  - Stoma site hypergranulation [Unknown]
  - Stoma site discharge [Unknown]
  - Wrong technique in device usage process [Recovered/Resolved]
  - Fall [Recovered/Resolved]
  - Pyrexia [Unknown]
  - On and off phenomenon [Recovered/Resolved]
  - Device leakage [Unknown]
  - Thermal burn [Unknown]
  - Mobility decreased [Unknown]
  - Stoma site pain [Unknown]
  - On and off phenomenon [Recovered/Resolved]
  - On and off phenomenon [Unknown]
  - Incontinence [Unknown]

NARRATIVE: CASE EVENT DATE: 2018
